FAERS Safety Report 6014557-0 (Version None)
Quarter: 2008Q4

REPORT INFORMATION
  Report Type: 
  Country: None (occurrence: None)
  Receive Date: 20081219
  Receipt Date: 20080820
  Transmission Date: 20090506
  Serious: No
  Sender: FDA-Public Use
  Company Number: A0743521A

PATIENT
  Age: 55 Year
  Sex: Male

DRUGS (1)
  1. AVODART [Suspect]
     Indication: BENIGN PROSTATIC HYPERPLASIA
     Dosage: 1CAP PER DAY
     Route: 048

REACTIONS (2)
  - LIBIDO DECREASED [None]
  - PENILE SIZE REDUCED [None]
